FAERS Safety Report 4452927-2 (Version None)
Quarter: 2004Q3

REPORT INFORMATION
  Report Type: 
  Country: None (occurrence: None)
  Receive Date: 20040916
  Receipt Date: 20040831
  Transmission Date: 20050211
  Serious: Yes (Hospitalization)
  Sender: FDA-Public Use
  Company Number: 168287

PATIENT
  Age: 47 Year
  Sex: Female

DRUGS (13)
  1. AVONEX [Suspect]
     Indication: MULTIPLE SCLEROSIS
     Dosage: 30 MCG QW IM
     Route: 030
     Dates: start: 20001201
  2. TEGRETOL [Concomitant]
  3. BACLOFEN [Concomitant]
  4. MACRODANTIN [Concomitant]
  5. KEPPRA [Concomitant]
  6. CALCIUM [Concomitant]
  7. COLACE [Concomitant]
  8. FLORINEF [Concomitant]
  9. PROTONIX [Concomitant]
  10. FERROUS GLUCONATE [Concomitant]
  11. MULTI-VITAMINS [Concomitant]
  12. BISACODYL SUPPOSITORY [Concomitant]
  13. ALBUTEROL INHALATION [Concomitant]

REACTIONS (31)
  - ABDOMINAL PAIN LOWER [None]
  - AREFLEXIA [None]
  - ASTHENIA [None]
  - BACK PAIN [None]
  - BLINDNESS UNILATERAL [None]
  - BONE MARROW DEPRESSION [None]
  - CARDIAC FAILURE CONGESTIVE [None]
  - COMA [None]
  - CONDITION AGGRAVATED [None]
  - CONVULSION [None]
  - CYSTITIS [None]
  - DECUBITUS ULCER [None]
  - DEPRESSION [None]
  - DYSPHAGIA [None]
  - ECCHYMOSIS [None]
  - ENCEPHALOPATHY [None]
  - HEART RATE DECREASED [None]
  - HYPOTHERMIA [None]
  - HYPOXIA [None]
  - KLEBSIELLA INFECTION [None]
  - LETHARGY [None]
  - MULTIPLE SCLEROSIS [None]
  - NEUROGENIC BLADDER [None]
  - NEUROPATHY [None]
  - OPTIC NEURITIS [None]
  - PLATELET COUNT INCREASED [None]
  - PSEUDOMONAS INFECTION [None]
  - QUADRIPLEGIA [None]
  - RESPIRATORY RATE DECREASED [None]
  - SEPSIS [None]
  - URINARY TRACT INFECTION [None]
